FAERS Safety Report 25371653 (Version 1)
Quarter: 2025Q2

REPORT INFORMATION
  Report Type: Report from Study
  Country: US (occurrence: US)
  Receive Date: 20250529
  Receipt Date: 20250529
  Transmission Date: 20250717
  Serious: No
  Sender: SANDOZ
  Company Number: US-SANDOZ-SDZ2025US035237

PATIENT
  Age: 15 Year
  Sex: Male

DRUGS (2)
  1. OMNITROPE [Suspect]
     Active Substance: SOMATROPIN
     Indication: Short stature
     Dosage: 3.3 MG, QD, STRENGTH-10 MG/1.5 ML IN CARTRIDGE
     Route: 058
     Dates: start: 20250417
  2. OMNITROPE [Suspect]
     Active Substance: SOMATROPIN
     Indication: Short stature
     Dosage: 3.3 MG, QD, STRENGTH-10 MG/1.5 ML IN CARTRIDGE
     Route: 058
     Dates: start: 20250417

REACTIONS (2)
  - Injection site pain [Not Recovered/Not Resolved]
  - Incorrect drug administration rate [Unknown]

NARRATIVE: CASE EVENT DATE: 20250417
